FAERS Safety Report 20381211 (Version 1)
Quarter: 2022Q1

REPORT INFORMATION
  Report Type: Spontaneous
  Country: US (occurrence: US)
  Receive Date: 20220127
  Receipt Date: 20220127
  Transmission Date: 20220423
  Serious: No
  Sender: FDA-Public Use
  Company Number: US-SA-SAC20220125001102

PATIENT
  Sex: Female

DRUGS (2)
  1. DIPHTHERIA AND TETANUS TOXOIDS AND ACELLULAR PERTUSSIS VACCINE ADSORBE [Suspect]
     Active Substance: DIPHTHERIA AND TETANUS TOXOIDS AND ACELLULAR PERTUSSIS VACCINE ADSORBED
     Indication: Immunisation
     Route: 065
  2. TUBERCULIN PURIFIED PROTEIN DERIVATIVE [Suspect]
     Active Substance: TUBERCULIN PURIFIED PROTEIN DERIVATIVE
     Indication: Tuberculin test
     Dosage: UNK
     Route: 030

REACTIONS (2)
  - Wrong product administered [Unknown]
  - Exposure during pregnancy [Unknown]
